FAERS Safety Report 8861635 (Version 1)
Quarter: 2012Q4

REPORT INFORMATION
  Report Type: 
  Country: US (occurrence: US)
  Receive Date: 20121025
  Receipt Date: 20121025
  Transmission Date: 20130627
  Serious: No
  Sender: FDA-Public Use
  Company Number: US-AMGEN-USASP2012019033

PATIENT
  Sex: Male

DRUGS (9)
  1. ENBREL [Suspect]
     Indication: PRODUCT USED FOR UNKNOWN INDICATION
     Dosage: 50 mg, qwk
     Route: 058
  2. ZOCORT [Concomitant]
     Dosage: 10 mg, UNK
  3. ASPIRIN [Concomitant]
     Dosage: 81 mg, UNK
  4. VICODIN ES [Concomitant]
  5. ZANTAC [Concomitant]
     Dosage: 150 mg, UNK
  6. FLEXERIL                           /00428402/ [Concomitant]
     Dosage: 10 mg, UNK
  7. GLUCOPHAGE [Concomitant]
     Dosage: 500 mg, UNK
  8. JANUVIA [Concomitant]
     Dosage: 25 mg, UNK
  9. METOPROLOL [Concomitant]
     Dosage: 25 mg, UNK

REACTIONS (1)
  - Therapeutic response decreased [Not Recovered/Not Resolved]
